FAERS Safety Report 4480822-1 (Version None)
Quarter: 2004Q4

REPORT INFORMATION
  Report Type: 
  Country: None (occurrence: None)
  Receive Date: 20041019
  Receipt Date: 20041012
  Transmission Date: 20050328
  Serious: Yes (Hospitalization)
  Sender: FDA-Public Use
  Company Number: SUS1-2004-00656

PATIENT
  Age: 42 Year
  Sex: Female

DRUGS (1)
  1. ADDERALL 10 [Suspect]
     Dosage: ONE DOSE, INTRAVENOUS
     Route: 042
     Dates: start: 20040501, end: 20040501

REACTIONS (5)
  - FALL [None]
  - INTENTIONAL MISUSE [None]
  - MEDICATION ERROR [None]
  - OEDEMA PERIPHERAL [None]
  - THROMBOSIS [None]
